FAERS Safety Report 4510825-X (Version None)
Quarter: 2004Q4

REPORT INFORMATION
  Report Type: 
  Country: None (occurrence: None)
  Receive Date: 20041025
  Receipt Date: 20031229
  Transmission Date: 20050328
  Serious: Yes (Other)
  Sender: FDA-Public Use
  Company Number: NSADSS2003010314

PATIENT
  Sex: Male

DRUGS (6)
  1. REMICADE [Suspect]
     Indication: CROHN'S DISEASE
     Dosage: 1 IN 1 AS NECESSARY, INTRAVENOUS DRIP
     Route: 041
  2. ALLOPURINOL [Concomitant]
  3. ASACOL [Concomitant]
  4. LOTREL (LOTREL) [Concomitant]
  5. PEPCID [Concomitant]
  6. PROTONIX [Concomitant]

REACTIONS (1)
  - HEPATITIS [None]
